FAERS Safety Report 12214283 (Version 1)
Quarter: 2016Q1

REPORT INFORMATION
  Report Type: Spontaneous
  Country: FR (occurrence: FR)
  Receive Date: 20160328
  Receipt Date: 20160328
  Transmission Date: 20160526
  Serious: Yes (Death, Other)
  Sender: FDA-Public Use
  Company Number: FR-BRISTOL-MYERS SQUIBB COMPANY-BMS-2016-019903

PATIENT
  Age: 84 Year
  Sex: Female

DRUGS (2)
  1. COUMADINE [Suspect]
     Active Substance: WARFARIN SODIUM
     Indication: PRODUCT USED FOR UNKNOWN INDICATION
     Dosage: UNK
     Route: 048
     Dates: end: 20131009
  2. LOVENOX [Suspect]
     Active Substance: ENOXAPARIN SODIUM
     Indication: PRODUCT USED FOR UNKNOWN INDICATION
     Dosage: UNK
     Route: 058
     Dates: start: 20131009

REACTIONS (6)
  - Extremity necrosis [Unknown]
  - Deep vein thrombosis [Unknown]
  - Peripheral artery occlusion [Unknown]
  - Fall [Unknown]
  - Intracranial haematoma [Fatal]
  - Haematoma evacuation [Unknown]

NARRATIVE: CASE EVENT DATE: 20131009
